FAERS Safety Report 6905298-3 (Version None)
Quarter: 2010Q3

REPORT INFORMATION
  Report Type: 
  Country: None (occurrence: None)
  Receive Date: 20100802
  Receipt Date: 20100722
  Transmission Date: 20110219
  Serious: Yes (Hospitalization)
  Sender: FDA-Public Use
  Company Number: UTC-001269

PATIENT
  Age: 46 Year
  Sex: Female
  Weight: 34.5 kg

DRUGS (5)
  1. REMODULIN [Suspect]
     Dosage: 34.56 UG/KG (0.024 UG/KG, 1 IN 1 MIN), SUBCUTANEOUS
     Route: 058
     Dates: start: 20090909
  2. REVATIO [Concomitant]
  3. DIGOXIN [Concomitant]
  4. PREVACID [Concomitant]
  5. OXYCODONE HCL [Concomitant]

REACTIONS (3)
  - BLOOD POTASSIUM DECREASED [None]
  - HYPOTENSION [None]
  - INFUSION SITE INFECTION [None]
